FAERS Safety Report 8062047-6 (Version None)
Quarter: 2012Q1

REPORT INFORMATION
  Report Type: 
  Country: None (occurrence: None)
  Receive Date: 20120123
  Receipt Date: 20120118
  Transmission Date: 20120608
  Serious: Yes (Death)
  Sender: FDA-Public Use
  Company Number: US-CELGENEUS-163-21880-11100700

PATIENT
  Sex: Male

DRUGS (8)
  1. SALT [Concomitant]
     Route: 065
  2. CRESTOR [Concomitant]
     Route: 065
  3. DECADRON [Concomitant]
     Route: 065
  4. PANTOPRAZOLE [Concomitant]
     Route: 065
  5. VITAMIN D + CALCIUM [Concomitant]
     Route: 065
  6. REVLIMID [Suspect]
     Indication: MULTIPLE MYELOMA
     Dosage: 25 MILLIGRAM
     Route: 048
     Dates: start: 20110913, end: 20111021
  7. ALLEGRA [Concomitant]
     Route: 065
  8. QUINAPRIL [Concomitant]
     Route: 065

REACTIONS (2)
  - MULTIPLE MYELOMA [None]
  - DRUG INEFFECTIVE [None]
